FAERS Safety Report 9326014 (Version 1)
Quarter: 2013Q2

REPORT INFORMATION
  Report Type: Spontaneous
  Country: US (occurrence: US)
  Receive Date: 20130604
  Receipt Date: 20130604
  Transmission Date: 20140414
  Serious: Yes (Other)
  Sender: FDA-Public Use
  Company Number: US-SANOFI-AVENTIS-2013SA055164

PATIENT
  Age: 74 Year
  Sex: Male
  Weight: 95.25 kg

DRUGS (28)
  1. PLAVIX [Suspect]
     Route: 048
     Dates: end: 201302
  2. OXALIPLATIN [Suspect]
     Dates: start: 201201, end: 201205
  3. CAMPTOSAR [Concomitant]
     Dates: start: 20121029, end: 20121210
  4. 5-FU [Concomitant]
  5. NORVASC [Concomitant]
  6. LOTENSIN [Concomitant]
  7. LASIX [Concomitant]
  8. IMDUR [Concomitant]
  9. ISOSORBIDE [Concomitant]
  10. PROTONIX [Concomitant]
  11. POTASSIUM [Concomitant]
  12. VESICARE [Concomitant]
  13. ASPIRIN [Concomitant]
  14. CRESTOR [Concomitant]
  15. TOPROL XL [Concomitant]
  16. VALIUM [Concomitant]
  17. DIPHENHYDRAMINE HYDROCHLORIDE [Concomitant]
  18. NITRO [Concomitant]
     Indication: ANGINA PECTORIS
  19. ZOFRAN [Concomitant]
     Indication: NAUSEA
  20. ZOFRAN [Concomitant]
     Indication: VOMITING
  21. OXYCODONE [Concomitant]
  22. PERCOCET [Concomitant]
  23. PREDNISONE [Concomitant]
  24. RESTORIL [Concomitant]
  25. IMODIUM [Concomitant]
  26. CORICIDIN [Concomitant]
  27. ERBITUX [Concomitant]
  28. AVASTIN [Concomitant]

REACTIONS (12)
  - Angina pectoris [Unknown]
  - Bladder neoplasm [Unknown]
  - Haematuria [Unknown]
  - Cystitis [Not Recovered/Not Resolved]
  - Cardiac disorder [Unknown]
  - Urinary bladder polyp [Unknown]
  - Carcinoembryonic antigen increased [Unknown]
  - Blood pressure abnormal [Unknown]
  - Weight decreased [Unknown]
  - Alopecia [Unknown]
  - Gastrointestinal motility disorder [Unknown]
  - Rash [Unknown]
